FAERS Safety Report 15762804 (Version 2)
Quarter: 2021Q1

REPORT INFORMATION
  Report Type: Spontaneous
  Country: US (occurrence: US)
  Receive Date: 20181226
  Receipt Date: 20210224
  Transmission Date: 20210419
  Serious: Yes (Other)
  Sender: FDA-Public Use
  Company Number: US-PFIZER INC-2018526591

PATIENT
  Age: 34 Year
  Sex: Female

DRUGS (3)
  1. LORAZEPAM. [Concomitant]
     Active Substance: LORAZEPAM
     Indication: THERMAL BURN
     Dosage: UNK
     Dates: start: 1995
  2. MORPHINE SULPHATE [Concomitant]
     Active Substance: MORPHINE SULFATE
     Indication: THERMAL BURN
     Dosage: UNK
     Dates: start: 1995
  3. DIPRIVAN [Suspect]
     Active Substance: PROPOFOL
     Indication: THERMAL BURN
     Dosage: 30?140 UG/KG/MIN
     Dates: start: 1995

REACTIONS (2)
  - Hypertriglyceridaemia [Unknown]
  - Pancreatitis [Recovered/Resolved]

NARRATIVE: CASE EVENT DATE: 1995
